FAERS Safety Report 7474583-1 (Version None)
Quarter: 2011Q2

REPORT INFORMATION
  Report Type: 
  Country: None (occurrence: None)
  Receive Date: 20110503
  Receipt Date: 20110420
  Transmission Date: 20111010
  Serious: Yes (Death)
  Sender: FDA-Public Use
  Company Number: 024669

PATIENT
  Sex: Male

DRUGS (8)
  1. ASPIRIN [Concomitant]
  2. BENSERAZIDE HYDROCHLORIDE W/LEVODOPA [Concomitant]
  3. SELEGILINE HYDROCHLORIDE [Concomitant]
  4. ROTIGOTINE (ROTIGOTINE) [Suspect]
     Indication: PARKINSON'S DISEASE
     Dosage: (2 MG-16 MG/24 HOURS TRANSDERMAL), (16 MG 1X/24 HOURS TRANSDERMAL)
     Route: 062
     Dates: start: 20100519, end: 20100720
  5. ROTIGOTINE (ROTIGOTINE) [Suspect]
     Indication: PARKINSON'S DISEASE
     Dosage: (2 MG-16 MG/24 HOURS TRANSDERMAL), (16 MG 1X/24 HOURS TRANSDERMAL)
     Route: 062
     Dates: start: 20100701, end: 20101226
  6. IMIDAPRIL HYDROCHLORIDE [Concomitant]
  7. MAGNESIUM OXIDE [Concomitant]
  8. AMANTADINE HYDROCHLORIDE [Concomitant]

REACTIONS (3)
  - SUDDEN DEATH [None]
  - MYOCARDIAL ISCHAEMIA [None]
  - CIRCULATORY COLLAPSE [None]
